FAERS Safety Report 17856150 (Version 2)
Quarter: 2020Q2

REPORT INFORMATION
  Report Type: Spontaneous
  Country: US (occurrence: US)
  Receive Date: 20200603
  Receipt Date: 20200615
  Transmission Date: 20200714
  Serious: No
  Sender: FDA-Public Use
  Company Number: US-ELI_LILLY_AND_COMPANY-US202005009039

PATIENT
  Sex: Female

DRUGS (11)
  1. EMGALITY [Suspect]
     Active Substance: GALCANEZUMAB-GNLM
     Indication: MIGRAINE
     Dosage: UNK, UNKNOWN
     Route: 065
     Dates: start: 201905, end: 201907
  2. EMGALITY [Suspect]
     Active Substance: GALCANEZUMAB-GNLM
     Indication: MIGRAINE
     Dosage: UNK, UNKNOWN
     Route: 065
     Dates: start: 201905, end: 201907
  3. EMGALITY [Suspect]
     Active Substance: GALCANEZUMAB-GNLM
     Dosage: UNK, UNKNOWN
     Route: 065
  4. EMGALITY [Suspect]
     Active Substance: GALCANEZUMAB-GNLM
     Indication: MIGRAINE
     Dosage: UNK, UNKNOWN
     Route: 065
     Dates: start: 201905, end: 201907
  5. EMGALITY [Suspect]
     Active Substance: GALCANEZUMAB-GNLM
     Indication: MIGRAINE
     Dosage: UNK, UNKNOWN
     Route: 065
     Dates: start: 201905, end: 201907
  6. EMGALITY [Suspect]
     Active Substance: GALCANEZUMAB-GNLM
     Dosage: UNK, UNKNOWN
     Route: 065
     Dates: start: 201911
  7. EMGALITY [Suspect]
     Active Substance: GALCANEZUMAB-GNLM
     Dosage: UNK, UNKNOWN
     Route: 065
     Dates: start: 201911
  8. EMGALITY [Suspect]
     Active Substance: GALCANEZUMAB-GNLM
     Indication: MIGRAINE
     Dosage: UNK, UNKNOWN
     Route: 065
     Dates: start: 201905, end: 201907
  9. EMGALITY [Suspect]
     Active Substance: GALCANEZUMAB-GNLM
     Indication: MIGRAINE
     Dosage: UNK, UNKNOWN
     Route: 065
     Dates: start: 201905, end: 201907
  10. EMGALITY [Suspect]
     Active Substance: GALCANEZUMAB-GNLM
     Dosage: UNK, UNKNOWN
     Route: 065
     Dates: start: 201911
  11. EMGALITY [Suspect]
     Active Substance: GALCANEZUMAB-GNLM
     Dosage: UNK, UNKNOWN
     Route: 065

REACTIONS (7)
  - Palpitations [Unknown]
  - Pain in extremity [Unknown]
  - Headache [Unknown]
  - Weight decreased [Unknown]
  - Drug ineffective [Unknown]
  - Asthma [Unknown]
  - Malaise [Unknown]

NARRATIVE: CASE EVENT DATE: 201907
